FAERS Safety Report 17162570 (Version 1)
Quarter: 2019Q4

REPORT INFORMATION
  Report Type: Spontaneous
  Country: FR (occurrence: FR)
  Receive Date: 20191217
  Receipt Date: 20191217
  Transmission Date: 20200122
  Serious: Yes (Other)
  Sender: FDA-Public Use
  Company Number: FR-AUROBINDO-AUR-APL-2019-104074

PATIENT
  Age: 96 Year
  Sex: Male
  Weight: 53 kg

DRUGS (2)
  1. PIPERACILLIN TAZOBACTAM PA [Suspect]
     Active Substance: PIPERACILLIN SODIUM\TAZOBACTAM SODIUM
     Indication: PYELONEPHRITIS
     Dosage: 12 GRAM, ONCE A DAY
     Route: 041
     Dates: start: 20191115, end: 20191117
  2. CIPROFLOXACIN. [Suspect]
     Active Substance: CIPROFLOXACIN
     Indication: PYELONEPHRITIS
     Dosage: 1000 MILLIGRAM, ONCE A DAY
     Route: 048
     Dates: start: 20191115, end: 20191117

REACTIONS (1)
  - Vascular purpura [Recovered/Resolved]

NARRATIVE: CASE EVENT DATE: 20191117
